FAERS Safety Report 9463517 (Version 1)
Quarter: 2013Q3

REPORT INFORMATION
  Report Type: Report from Study
  Country: CN (occurrence: CN)
  Receive Date: 20130819
  Receipt Date: 20130819
  Transmission Date: 20140515
  Serious: Yes (Death, Other)
  Sender: FDA-Public Use
  Company Number: CN-ROCHE-1261740

PATIENT
  Sex: 0

DRUGS (3)
  1. MYCOPHENOLATE MOFETIL [Suspect]
     Indication: PROPHYLAXIS AGAINST TRANSPLANT REJECTION
     Route: 065
  2. RAPAMYCIN [Suspect]
     Indication: PROPHYLAXIS AGAINST TRANSPLANT REJECTION
     Route: 065
  3. TACROLIMUS [Suspect]
     Indication: PROPHYLAXIS AGAINST TRANSPLANT REJECTION
     Route: 065

REACTIONS (10)
  - Lung infection [Fatal]
  - Abdominal infection [Fatal]
  - Pneumonia [Fatal]
  - Renal failure acute [Fatal]
  - Infection [Fatal]
  - Sepsis [Fatal]
  - Pneumonia cryptococcal [Unknown]
  - Epstein-Barr virus infection [Recovered/Resolved]
  - Cytomegalovirus infection [Unknown]
  - Tuberculosis [Recovered/Resolved]
